FAERS Safety Report 5418757-X (Version None)
Quarter: 2007Q3

REPORT INFORMATION
  Report Type: 
  Country: None (occurrence: None)
  Receive Date: 20070817
  Receipt Date: 20070806
  Transmission Date: 20080115
  Serious: Yes (Hospitalization)
  Sender: FDA-Public Use
  Company Number: IT-PFIZER INC-2007065425

PATIENT
  Sex: Female

DRUGS (2)
  1. BASSADO [Suspect]
     Indication: BRUCELLOSIS
     Route: 048
     Dates: start: 20070802, end: 20070802
  2. ZANTAC 150 [Suspect]
     Indication: ABDOMINAL PAIN UPPER
     Route: 048
     Dates: start: 20070802, end: 20070802

REACTIONS (2)
  - ERYTHEMA [None]
  - HEADACHE [None]
